FAERS Safety Report 11873408 (Version 3)
Quarter: 2016Q1

REPORT INFORMATION
  Report Type: Report from Study
  Country: US (occurrence: US)
  Receive Date: 20151228
  Receipt Date: 20160224
  Transmission Date: 20160526
  Serious: Yes (Hospitalization)
  Sender: FDA-Public Use
  Company Number: US-ACTELION-A-NJ2015-124138

PATIENT
  Age: 47 Year
  Sex: Female

DRUGS (3)
  1. TREPROSTINIL DIOLAMIN [Suspect]
     Active Substance: TREPROSTINIL DIOLAMINE
     Indication: PRODUCT USED FOR UNKNOWN INDICATION
     Route: 065
  2. VELETRI [Suspect]
     Active Substance: EPOPROSTENOL
     Indication: PULMONARY ARTERIAL HYPERTENSION
     Dosage: 6.8 NG/KG, PER MIN
     Route: 042
     Dates: start: 20130225
  3. OPSUMIT [Suspect]
     Active Substance: MACITENTAN
     Indication: PULMONARY ARTERIAL HYPERTENSION
     Dosage: 10 MG, QD
     Route: 048
     Dates: start: 20141025

REACTIONS (16)
  - Dizziness [Unknown]
  - Vision blurred [Not Recovered/Not Resolved]
  - Neuralgia [Unknown]
  - Cough [Not Recovered/Not Resolved]
  - Eye irritation [Not Recovered/Not Resolved]
  - Hypotension [Not Recovered/Not Resolved]
  - Pain in extremity [Unknown]
  - Right ventricular failure [Unknown]
  - Presyncope [Unknown]
  - Tachycardia [Not Recovered/Not Resolved]
  - Blood cortisol decreased [Unknown]
  - Malaise [Unknown]
  - Headache [Unknown]
  - Catheter site pain [Not Recovered/Not Resolved]
  - Syncope [Unknown]
  - Dehydration [Not Recovered/Not Resolved]

NARRATIVE: CASE EVENT DATE: 20141216
